FAERS Safety Report 22131237 (Version 6)
Quarter: 2023Q2

REPORT INFORMATION
  Report Type: Spontaneous
  Country: US (occurrence: US)
  Receive Date: 20230323
  Receipt Date: 20230512
  Transmission Date: 20230722
  Serious: No
  Sender: FDA-Public Use
  Company Number: US-PFIZER INC-PV202300053943

PATIENT
  Age: 36 Year
  Sex: Female

DRUGS (2)
  1. BRAFTOVI [Suspect]
     Active Substance: ENCORAFENIB
     Indication: Anaplastic astrocytoma
     Dosage: 450 MG, 1X/DAY [450MG (6 TABS) PO ONCE DAILY #180]
     Route: 048
  2. MEKTOVI [Suspect]
     Active Substance: BINIMETINIB
     Indication: Anaplastic astrocytoma
     Dosage: 45 MG, 2X/DAY [45MG (3 TABS) PO TWICE DAILY, #180]
     Route: 048

REACTIONS (2)
  - Neoplasm progression [Unknown]
  - Off label use [Unknown]

NARRATIVE: CASE EVENT DATE: 20230201
